FAERS Safety Report 5855645-9 (Version None)
Quarter: 2008Q3

REPORT INFORMATION
  Report Type: 
  Country: None (occurrence: None)
  Receive Date: 20080823
  Receipt Date: 20080813
  Transmission Date: 20090109
  Serious: Yes (Hospitalization)
  Sender: FDA-Public Use
  Company Number: US-ELI_LILLY_AND_COMPANY-US200808002616

PATIENT
  Sex: Female

DRUGS (2)
  1. HUMATROPE [Suspect]
     Indication: GROWTH HORMONE DEFICIENCY
     Dosage: UNK, UNKNOWN
     Dates: start: 19980101, end: 20080101
  2. SLOW-FE [Concomitant]
     Dosage: UNK, UNKNOWN

REACTIONS (7)
  - ANAEMIA [None]
  - CATARACT [None]
  - CHOLECYSTECTOMY [None]
  - HUMERUS FRACTURE [None]
  - INFLUENZA [None]
  - JOINT ARTHROPLASTY [None]
  - VISUAL ACUITY REDUCED [None]
